FAERS Safety Report 6687613-1 (Version None)
Quarter: 2010Q2

REPORT INFORMATION
  Report Type: 
  Country: None (occurrence: None)
  Receive Date: 20100414
  Receipt Date: 20100331
  Transmission Date: 20101027
  Serious: Yes (Hospitalization, Other)
  Sender: FDA-Public Use
  Company Number: 230013M09SWE

PATIENT
  Age: 50 Year
  Sex: Female

DRUGS (1)
  1. REBIF [Suspect]
     Dosage: 44 MCG
     Dates: start: 20070101

REACTIONS (7)
  - CHEST PAIN [None]
  - DISCOMFORT [None]
  - GOITRE [None]
  - HAEMOGLOBIN DECREASED [None]
  - HERNIA [None]
  - MENORRHAGIA [None]
  - UTERINE LEIOMYOMA [None]
